FAERS Safety Report 5412590-0 (Version None)
Quarter: 2007Q3

REPORT INFORMATION
  Report Type: 
  Country: None (occurrence: None)
  Receive Date: 20070713
  Receipt Date: 20070228
  Transmission Date: 20080115
  Serious: Yes (Hospitalization, Other)
  Sender: FDA-Public Use
  Company Number: US-JNJFOC-20060905594

PATIENT
  Age: 42 Year
  Sex: Female
  Weight: 68.9467 kg

DRUGS (4)
  1. ORTHO EVRA [Suspect]
     Indication: CONTRACEPTION
     Dosage: TRANSDERMAL
     Route: 062
     Dates: start: 20030101, end: 20060201
  2. FLOVENT [Concomitant]
  3. ALBUTEROL [Concomitant]
  4. SINGULAR (MONTELUKAST SODIUM) [Concomitant]

REACTIONS (1)
  - DEEP VEIN THROMBOSIS [None]
